FAERS Safety Report 6985586-5 (Version None)
Quarter: 2010Q3

REPORT INFORMATION
  Report Type: 
  Country: None (occurrence: None)
  Receive Date: 20100915
  Receipt Date: 20100903
  Transmission Date: 20110219
  Serious: No
  Sender: FDA-Public Use
  Company Number: AU-JNJFOC-20100903193

PATIENT
  Sex: Female

DRUGS (1)
  1. DURAGESIC-100 [Suspect]
     Indication: GROIN PAIN
     Route: 062

REACTIONS (3)
  - DRUG DOSE OMISSION [None]
  - FATIGUE [None]
  - MIDDLE INSOMNIA [None]
